FAERS Safety Report 18990456 (Version 1)
Quarter: 2021Q1

REPORT INFORMATION
  Report Type: Spontaneous
  Country: US (occurrence: US)
  Receive Date: 20210310
  Receipt Date: 20210310
  Transmission Date: 20210420
  Serious: No
  Sender: FDA-Public Use
  Company Number: US-BIOVITRUM-2021US2338

PATIENT
  Sex: Female
  Weight: 9 kg

DRUGS (3)
  1. SYNAGIS [Suspect]
     Active Substance: PALIVIZUMAB
     Indication: VENTRICULAR SEPTAL DEFECT
     Route: 030
     Dates: start: 20201128
  2. SYNAGIS [Suspect]
     Active Substance: PALIVIZUMAB
     Indication: CARDIAC MURMUR
  3. SYNAGIS [Suspect]
     Active Substance: PALIVIZUMAB
     Indication: ATRIAL SEPTAL DEFECT

REACTIONS (1)
  - Weight decreased [Unknown]
